FAERS Safety Report 15220833 (Version 7)
Quarter: 2019Q3

REPORT INFORMATION
  Report Type: Report from Study
  Country: CA (occurrence: CA)
  Receive Date: 20180731
  Receipt Date: 20190806
  Transmission Date: 20191004
  Serious: Yes (Hospitalization)
  Sender: FDA-Public Use
  Company Number: CA-EISAI MEDICAL RESEARCH-EC-2018-035692

PATIENT
  Age: 66 Year
  Sex: Male
  Weight: 106.45 kg

DRUGS (13)
  1. LENVATINIB [Suspect]
     Active Substance: LENVATINIB
     Dosage: BLINDED DOSE
     Route: 048
     Dates: start: 20180501, end: 20180604
  2. LEVOTHYROXINE. [Concomitant]
     Active Substance: LEVOTHYROXINE
  3. LENVATINIB [Suspect]
     Active Substance: LENVATINIB
     Indication: THYROID CANCER
     Dosage: BLINDED DOSE
     Route: 048
     Dates: start: 20180116, end: 20180409
  4. NORVASC [Concomitant]
     Active Substance: AMLODIPINE BESYLATE
  5. HUMALOG [Concomitant]
     Active Substance: INSULIN LISPRO
  6. PERINDOPRIL [Concomitant]
     Active Substance: PERINDOPRIL
  7. LENVATINIB [Suspect]
     Active Substance: LENVATINIB
     Dosage: BLINDED DOSE
     Route: 048
     Dates: start: 20180612, end: 20180722
  8. JARDIANCE [Concomitant]
     Active Substance: EMPAGLIFLOZIN
  9. LENVATINIB [Suspect]
     Active Substance: LENVATINIB
     Dosage: BLINDED DOSE
     Route: 048
     Dates: start: 20180814, end: 20190525
  10. METFORMIN [Concomitant]
     Active Substance: METFORMIN HYDROCHLORIDE
  11. CODEINE SYRUP [Concomitant]
  12. TYLENOL WITH CODEINE [Concomitant]
     Active Substance: ACETAMINOPHEN\CODEINE PHOSPHATE
  13. UREMOL CREAM [Concomitant]

REACTIONS (2)
  - Lipase increased [Recovered/Resolved]
  - Cholecystitis acute [Recovered/Resolved]

NARRATIVE: CASE EVENT DATE: 20180130
